FAERS Safety Report 7049997-4 (Version None)
Quarter: 2010Q4

REPORT INFORMATION
  Report Type: 
  Country: None (occurrence: None)
  Receive Date: 20101018
  Receipt Date: 20101007
  Transmission Date: 20110411
  Serious: Yes (Hospitalization)
  Sender: FDA-Public Use
  Company Number: US-US-EMD SERONO, INC.-7020781

PATIENT
  Sex: Male
  Weight: 104 kg

DRUGS (6)
  1. REBIF [Suspect]
     Indication: MULTIPLE SCLEROSIS
     Route: 058
     Dates: start: 20090708, end: 20100909
  2. LEVEMIR [Concomitant]
     Indication: DIABETES MELLITUS
     Dates: start: 20090101
  3. GLUCOPHAGE [Concomitant]
     Indication: DIABETES MELLITUS
  4. ZOCOR [Concomitant]
     Indication: BLOOD CHOLESTEROL
  5. AMBIEN [Concomitant]
     Indication: INSOMNIA
  6. LISINOPRIL [Concomitant]
     Indication: HYPERTENSION

REACTIONS (4)
  - CLAVICLE FRACTURE [None]
  - CONTUSION [None]
  - RIB FRACTURE [None]
  - TRAUMATIC LUNG INJURY [None]
